FAERS Safety Report 6249826-2 (Version None)
Quarter: 2009Q2

REPORT INFORMATION
  Report Type: 
  Country: None (occurrence: None)
  Receive Date: 20090629
  Receipt Date: 20090626
  Transmission Date: 20091009
  Serious: Yes (Disabling)
  Sender: FDA-Public Use
  Company Number: GB-WYE-G03932909

PATIENT
  Age: 42 Year
  Sex: Female
  Weight: 65 kg

DRUGS (2)
  1. ANADIN IBUPROFEN [Suspect]
     Dosage: UNKNOWN
     Route: 048
  2. SERTRALINE [Suspect]
     Indication: DEPRESSION
     Dosage: UNKNOWN
     Route: 048

REACTIONS (1)
  - OSTEONECROSIS [None]
